FAERS Safety Report 10585426 (Version 1)
Quarter: 2014Q4

REPORT INFORMATION
  Report Type: Spontaneous
  Country: TR (occurrence: None)
  Receive Date: 20141113
  Receipt Date: 20141113
  Transmission Date: 20150529
  Serious: Yes (Hospitalization)
  Sender: FDA-Public Use
  Company Number: 2619797

PATIENT
  Age: 66 Year
  Sex: Male

DRUGS (6)
  1. PREDNISONE. [Suspect]
     Active Substance: PREDNISONE
     Indication: LYMPHOMA
  2. VINCRISTINE SULFATE. [Suspect]
     Active Substance: VINCRISTINE SULFATE
     Indication: LYMPHOMA
  3. CYCLOPHOSPHAMIDE. [Suspect]
     Active Substance: CYCLOPHOSPHAMIDE
     Indication: LYMPHOMA
  4. EPIRUBICIN [Suspect]
     Active Substance: EPIRUBICIN
     Indication: LYMPHOMA
  5. RITUXIMAB [Suspect]
     Active Substance: RITUXIMAB
     Indication: LYMPHOMA
  6. DOXORUBICIN [Suspect]
     Active Substance: DOXORUBICIN
     Indication: LYMPHOMA

REACTIONS (8)
  - Hypertension [None]
  - Demyelinating polyneuropathy [None]
  - Fatigue [None]
  - Gait disturbance [None]
  - Tachycardia [None]
  - Orthostatic hypotension [None]
  - Muscular weakness [None]
  - Paresis [None]
